FAERS Safety Report 21012081 (Version 1)
Quarter: 2022Q2

REPORT INFORMATION
  Report Type: Spontaneous
  Country: US (occurrence: US)
  Receive Date: 20220627
  Receipt Date: 20220627
  Transmission Date: 20220721
  Serious: Yes (Death, Other)
  Sender: FDA-Public Use
  Company Number: US-PURDUE-USA-2020-0273772

PATIENT
  Age: 27 Year
  Sex: Female

DRUGS (1)
  1. HYDROCODONE BITARTRATE AND ACETAMINOPHEN [Suspect]
     Active Substance: ACETAMINOPHEN\HYDROCODONE BITARTRATE
     Indication: Product used for unknown indication
     Dosage: UNKNOWN
     Route: 048

REACTIONS (8)
  - Toxicity to various agents [Fatal]
  - Overdose [Unknown]
  - Post-traumatic stress disorder [Unknown]
  - Fibromyalgia [Unknown]
  - General physical health deterioration [Unknown]
  - Emotional distress [Unknown]
  - Anhedonia [Unknown]
  - Depression [Unknown]

NARRATIVE: CASE EVENT DATE: 20170421
